FAERS Safety Report 5793834-2 (Version None)
Quarter: 2008Q2

REPORT INFORMATION
  Report Type: 
  Country: None (occurrence: None)
  Receive Date: 20080627
  Receipt Date: 20080617
  Transmission Date: 20081010
  Serious: Yes (Hospitalization)
  Sender: FDA-Public Use
  Company Number: JP-VALEANT-2008VX001238

PATIENT
  Age: 57 Year
  Sex: Male
  Weight: 74 kg

DRUGS (8)
  1. PERMAX [Suspect]
     Indication: PARKINSON'S DISEASE
     Route: 048
     Dates: start: 20080412, end: 20080425
  2. PERMAX [Suspect]
     Route: 048
     Dates: start: 20080426, end: 20080507
  3. PERMAX [Suspect]
     Route: 048
     Dates: start: 20080508, end: 20080523
  4. DICLOFENAC SODIUM [Concomitant]
     Route: 065
     Dates: start: 20080507, end: 20080508
  5. ENTACAPONE [Concomitant]
     Route: 065
     Dates: start: 20071103
  6. CARBIDOPA [Concomitant]
     Route: 065
     Dates: start: 20080221
  7. LEVODOPA [Concomitant]
     Route: 065
     Dates: start: 20080221
  8. DOMPERIDONE [Concomitant]
     Route: 065
     Dates: start: 20080425

REACTIONS (2)
  - GASTRIC ULCER HAEMORRHAGE [None]
  - TACHYCARDIA [None]
